FAERS Safety Report 25768559 (Version 3)
Quarter: 2025Q4

REPORT INFORMATION
  Report Type: Spontaneous
  Country: JP (occurrence: JP)
  Receive Date: 20250905
  Receipt Date: 20251022
  Transmission Date: 20260117
  Serious: Yes (Other)
  Sender: BRISTOL-MYERS SQUIBB COMPANY
  Company Number: JP-TAIHO-2025-009019

PATIENT
  Age: 72 Year
  Sex: Female

DRUGS (5)
  1. ABRAXANE [Suspect]
     Active Substance: PACLITAXEL
     Indication: Triple negative breast cancer
     Dosage: ON DAYS 1, 8, AND 15 OF EACH 28-DAY CYCLE; CYCLE 1?DAILY DOSE: 100 MILLIGRAM(S)/SQ. METER
  2. ABRAXANE [Suspect]
     Active Substance: PACLITAXEL
     Dosage: DOSE NOT REPORTED/WEEK; AT A DOSE REDUCED BY 1 LEVEL; ON DAYS 1, 8, AND 15 OF EACH 28-DAY CYCLE; CYCLE 2
  3. ABRAXANE [Suspect]
     Active Substance: PACLITAXEL
     Dosage: DOSE NOT REPORTED/WEEK; AT A DOSE REDUCED BY 2 LEVELS; ON DAYS 1, 8, AND 15 OF EACH 28-DAY CYCLE; FROM CYCLE 3
  4. TECENTRIQ [Concomitant]
     Active Substance: ATEZOLIZUMAB
     Indication: Triple negative breast cancer
     Dosage: ON DAYS 1 AND 15 OF EACH 28-DAY CYCLE?DAILY DOSE: 840 MILLIGRAM(S)
  5. DENOSUMAB [Concomitant]
     Active Substance: DENOSUMAB
     Indication: Prophylaxis

REACTIONS (7)
  - Hypothyroidism [Unknown]
  - Neutrophil count decreased [Unknown]
  - Anaemia [Unknown]
  - Hepatic function abnormal [Unknown]
  - Alopecia [Unknown]
  - Rash [Unknown]
  - Palmar-plantar erythrodysaesthesia syndrome [Unknown]
